FAERS Safety Report 8127957-X (Version None)
Quarter: 2012Q1

REPORT INFORMATION
  Report Type: 
  Country: None (occurrence: None)
  Receive Date: 20120210
  Receipt Date: 20061009
  Transmission Date: 20120608
  Serious: No
  Sender: FDA-Public Use
  Company Number: 2006BI014562

PATIENT
  Sex: Female

DRUGS (3)
  1. TYSABRI [Suspect]
     Route: 042
     Dates: start: 20080718
  2. TYSABRI [Suspect]
     Indication: MULTIPLE SCLEROSIS
     Route: 042
     Dates: start: 20060910, end: 20061026
  3. AMPYRA [Concomitant]
     Dates: start: 20090701, end: 20120101

REACTIONS (10)
  - MUSCLE TIGHTNESS [None]
  - ASTHENIA [None]
  - INFECTION SUSCEPTIBILITY INCREASED [None]
  - PRURITUS [None]
  - MULTIPLE SCLEROSIS RELAPSE [None]
  - HERPES ZOSTER OPHTHALMIC [None]
  - NERVE INJURY [None]
  - HERPES ZOSTER [None]
  - HEADACHE [None]
  - PAIN IN EXTREMITY [None]
